FAERS Safety Report 6231043-3 (Version None)
Quarter: 2009Q2

REPORT INFORMATION
  Report Type: 
  Country: None (occurrence: None)
  Receive Date: 20090616
  Receipt Date: 20090608
  Transmission Date: 20091009
  Serious: Yes (Hospitalization, Other)
  Sender: FDA-Public Use
  Company Number: PHHO2004US09429

PATIENT
  Sex: Male
  Weight: 136.4 kg

DRUGS (17)
  1. CIBADREX T29368+ [Suspect]
     Indication: HYPERTENSION
     Dosage: LEVEL 1
     Route: 048
     Dates: start: 20040610, end: 20040615
  2. XOPENEX [Concomitant]
  3. PULMICORT-100 [Concomitant]
  4. PROVENTIL-HFA [Concomitant]
  5. LUMIGAN [Concomitant]
  6. LANTUS [Concomitant]
  7. ACTOS [Concomitant]
  8. GLUCOVANCE [Concomitant]
  9. COREG [Concomitant]
  10. COZAAR [Concomitant]
  11. ASPIRIN [Concomitant]
  12. LIPITOR [Concomitant]
  13. ALBUTEROL [Concomitant]
  14. REMINYL [Concomitant]
  15. ZYRTEC [Concomitant]
  16. NASONEX [Concomitant]
  17. LASIX [Concomitant]
     Indication: OEDEMA

REACTIONS (30)
  - ANGINA PECTORIS [None]
  - ASTHMA [None]
  - BLOOD UREA INCREASED [None]
  - BREATH SOUNDS ABNORMAL [None]
  - CARDIAC FAILURE CONGESTIVE [None]
  - CHEST DISCOMFORT [None]
  - CONCOMITANT DISEASE PROGRESSION [None]
  - CORONARY ARTERY DISEASE [None]
  - COUGH [None]
  - CREPITATIONS [None]
  - DIZZINESS [None]
  - DYSPNOEA [None]
  - DYSPNOEA PAROXYSMAL NOCTURNAL [None]
  - HYPERHIDROSIS [None]
  - INSOMNIA [None]
  - LEFT ATRIAL DILATATION [None]
  - LEFT VENTRICULAR HYPERTROPHY [None]
  - LEUKOCYTOSIS [None]
  - MITRAL VALVE INCOMPETENCE [None]
  - MUSCULOSKELETAL PAIN [None]
  - NAUSEA [None]
  - NEUROPATHY PERIPHERAL [None]
  - NIGHT SWEATS [None]
  - OEDEMA [None]
  - ORTHOPNOEA [None]
  - PALPITATIONS [None]
  - PARAESTHESIA [None]
  - PRESYNCOPE [None]
  - PROSTATE EXAMINATION [None]
  - THROMBOCYTHAEMIA [None]
